FAERS Safety Report 9440243 (Version 1)
Quarter: 2013Q3

REPORT INFORMATION
  Report Type: Report from Study
  Country: AR (occurrence: AR)
  Receive Date: 20130805
  Receipt Date: 20130805
  Transmission Date: 20140515
  Serious: Yes (Death, Other)
  Sender: FDA-Public Use
  Company Number: PHHY2013AR056016

PATIENT
  Age: 57 Year
  Sex: Male

DRUGS (2)
  1. ONBREZ [Suspect]
     Indication: CHRONIC OBSTRUCTIVE PULMONARY DISEASE
     Dosage: 150 UG, BID
     Dates: start: 201304, end: 20130527
  2. ONBREZ [Suspect]
     Dosage: 150 UG, BID

REACTIONS (4)
  - Lung disorder [Fatal]
  - Immune system disorder [Unknown]
  - Dyspnoea [Not Recovered/Not Resolved]
  - Inappropriate schedule of drug administration [Not Recovered/Not Resolved]
